FAERS Safety Report 17305207 (Version 3)
Quarter: 2020Q1

REPORT INFORMATION
  Report Type: Report from Study
  Country: None (occurrence: US)
  Receive Date: 20200123
  Receipt Date: 20200131
  Transmission Date: 20200409
  Serious: Yes (Other)
  Sender: FDA-Public Use
  Company Number: US-ABBVIE-20K-163-3241827-00

PATIENT
  Sex: Female
  Weight: 49.94 kg

DRUGS (8)
  1. PANTOPRAZOLE [Concomitant]
     Active Substance: PANTOPRAZOLE
     Indication: GASTROOESOPHAGEAL REFLUX DISEASE
  2. LOMOTIL [Concomitant]
     Active Substance: ATROPINE SULFATE\DIPHENOXYLATE HYDROCHLORIDE
     Indication: DIARRHOEA
  3. MIRACLE MOUTHWASH [Concomitant]
     Indication: CHEMOTHERAPY
  4. ALKASID SURPLUS [Concomitant]
     Indication: COUGH
  5. CREON [Suspect]
     Active Substance: PANCRELIPASE AMYLASE\PANCRELIPASE LIPASE\PANCRELIPASE PROTEASE
     Indication: PANCREATIC CARCINOMA
     Dosage: 2 EACH MEAL AND 1 EVERY SNACK
     Route: 048
     Dates: start: 2015
  6. COMPAZINE [Concomitant]
     Active Substance: PROCHLORPERAZINE MALEATE
     Indication: NAUSEA
  7. ZOFRAN [Concomitant]
     Active Substance: ONDANSETRON HYDROCHLORIDE
     Indication: NAUSEA
  8. ALKASID SURPLUS [Concomitant]
     Indication: NASOPHARYNGITIS

REACTIONS (1)
  - Pancreatic carcinoma [Recovering/Resolving]
